FAERS Safety Report 24142080 (Version 3)
Quarter: 2024Q4

REPORT INFORMATION
  Report Type: Spontaneous
  Country: US (occurrence: US)
  Receive Date: 20240726
  Receipt Date: 20241010
  Transmission Date: 20250115
  Serious: Yes (Hospitalization, Other)
  Sender: SLATE RUN
  Company Number: US-SLATERUN-2024SRSPO00131

PATIENT

DRUGS (2)
  1. PROMETHAZINE DM ORAL SOLUTION [Suspect]
     Active Substance: ALCOHOL\DEXTROMETHORPHAN HYDROBROMIDE\PROMETHAZINE HYDROCHLORIDE
     Indication: Product used for unknown indication
     Route: 048
     Dates: start: 202404, end: 202405
  2. METHYLPREDNISOLONE [Suspect]
     Active Substance: METHYLPREDNISOLONE
     Indication: Nasopharyngitis
     Route: 048
     Dates: start: 20240602, end: 20240607

REACTIONS (1)
  - Gallbladder injury [Recovering/Resolving]

NARRATIVE: CASE EVENT DATE: 20240101
